FAERS Safety Report 5211377-1 (Version None)
Quarter: 2007Q1

REPORT INFORMATION
  Report Type: 
  Country: None (occurrence: None)
  Receive Date: 20070112
  Receipt Date: 20070102
  Transmission Date: 20070707
  Serious: Yes (Hospitalization)
  Sender: FDA-Public Use
  Company Number: MEDI-0005074

PATIENT
  Age: 71 Year
  Sex: Male
  Weight: 89.3586 kg

DRUGS (2)
  1. ETHYOL [Suspect]
     Dates: start: 20060101, end: 20061001
  2. RADIATION THERAPY [Concomitant]

REACTIONS (12)
  - BACK PAIN [None]
  - BLOOD PRESSURE DECREASED [None]
  - CHILLS [None]
  - DECREASED APPETITE [None]
  - DIZZINESS [None]
  - DYSURIA [None]
  - HEART RATE IRREGULAR [None]
  - NEUTROPENIA [None]
  - PYREXIA [None]
  - RASH [None]
  - TREMOR [None]
  - WEIGHT DECREASED [None]
